FAERS Safety Report 20265621 (Version 1)
Quarter: 2021Q4

REPORT INFORMATION
  Report Type: Report from Study
  Country: BR (occurrence: BR)
  Receive Date: 20211231
  Receipt Date: 20211231
  Transmission Date: 20220303
  Serious: Yes (Other)
  Sender: FDA-Public Use
  Company Number: BR-NOVARTISPH-NVSC2021BR158014

PATIENT
  Age: 63 Year
  Sex: Female

DRUGS (4)
  1. COSENTYX [Suspect]
     Active Substance: SECUKINUMAB
     Indication: Psoriasis
     Dosage: 300 MG, QMO (EVERY 30 DAYS)
     Route: 058
     Dates: start: 20210721
  2. COSENTYX [Suspect]
     Active Substance: SECUKINUMAB
     Indication: Psoriasis
     Dosage: UNK (ATTACK DOSES)
     Route: 065
     Dates: start: 20210728
  3. COSENTYX [Suspect]
     Active Substance: SECUKINUMAB
     Dosage: 300 MG, UNKNOWN
     Route: 065
     Dates: start: 202107
  4. COSENTYX [Suspect]
     Active Substance: SECUKINUMAB
     Dosage: UNK (LAST APPLICATION)
     Route: 065
     Dates: start: 20211021

REACTIONS (18)
  - Malignant melanoma [Unknown]
  - Limb mass [Not Recovered/Not Resolved]
  - Spinal pain [Unknown]
  - Lipoma [Not Recovered/Not Resolved]
  - Pain in extremity [Not Recovered/Not Resolved]
  - Condition aggravated [Unknown]
  - Rash macular [Not Recovered/Not Resolved]
  - Panic reaction [Unknown]
  - Decreased immune responsiveness [Recovering/Resolving]
  - Pyrexia [Not Recovered/Not Resolved]
  - Headache [Not Recovered/Not Resolved]
  - Dyspnoea [Recovering/Resolving]
  - Malaise [Unknown]
  - Pain [Not Recovered/Not Resolved]
  - Sneezing [Not Recovered/Not Resolved]
  - Rhinorrhoea [Recovering/Resolving]
  - Nasopharyngitis [Recovering/Resolving]
  - Product prescribing error [Not Recovered/Not Resolved]

NARRATIVE: CASE EVENT DATE: 20210701
